FAERS Safety Report 5355888-7 (Version None)
Quarter: 2007Q2

REPORT INFORMATION
  Report Type: 
  Country: None (occurrence: None)
  Receive Date: 20070613
  Receipt Date: 20070604
  Transmission Date: 20071010
  Serious: Yes (Life-Threatening)
  Sender: FDA-Public Use
  Company Number: AU-ROCHE-499414

PATIENT
  Age: 24 Year
  Sex: Female

DRUGS (5)
  1. LARIAM [Suspect]
     Indication: DRUG USE FOR UNKNOWN INDICATION
     Route: 048
     Dates: start: 20070415, end: 20070520
  2. LEVLEN ED [Concomitant]
  3. TETANUS VACCINE [Concomitant]
  4. TYPHOID VACCINE [Concomitant]
  5. RABIES VACCINE [Concomitant]

REACTIONS (4)
  - DIARRHOEA [None]
  - HEPATIC FAILURE [None]
  - HEPATITIS FULMINANT [None]
  - VOMITING [None]
